FAERS Safety Report 5613896-2 (Version None)
Quarter: 2008Q1

REPORT INFORMATION
  Report Type: 
  Country: None (occurrence: None)
  Receive Date: 20080130
  Receipt Date: 20060404
  Transmission Date: 20080703
  Serious: Yes (Other)
  Sender: FDA-Public Use
  Company Number: US022273

PATIENT
  Sex: Female

DRUGS (10)
  1. PROVIGIL [Suspect]
     Dosage: ORAL
     Route: 048
  2. PROAMATINE [Suspect]
     Indication: AUTONOMIC NERVOUS SYSTEM IMBALANCE
     Dosage: 10 MG TID
     Dates: start: 20010301, end: 20010901
  3. PROAMATINE [Suspect]
     Indication: ORTHOSTATIC HYPOTENSION
     Dosage: 10 MG TID
     Dates: start: 20010301, end: 20010901
  4. TEGRETOL [Suspect]
  5. IBUPROFEN [Concomitant]
  6. RELAFEN [Concomitant]
  7. SERZONE [Concomitant]
  8. SYNTHROID [Concomitant]
  9. TRAZODONE HCL [Concomitant]
  10. MULTI-VITAMINS [Concomitant]

REACTIONS (6)
  - BRONCHITIS CHRONIC [None]
  - HYPERTHYROIDISM [None]
  - HYPOTHYROIDISM [None]
  - ONYCHOMADESIS [None]
  - SENSORY LOSS [None]
  - STEVENS-JOHNSON SYNDROME [None]
